FAERS Safety Report 16985936 (Version 1)
Quarter: 2019Q4

REPORT INFORMATION
  Report Type: Spontaneous
  Country: US (occurrence: US)
  Receive Date: 20190918
  Receipt Date: 20190918
  Transmission Date: 20200122
  Serious: Yes (Other)
  Sender: FDA-Public Use
  Company Number: None

PATIENT
  Age: 58 Year
  Sex: Female
  Weight: 83.91 kg

DRUGS (4)
  1. MESALAMINE ORAL TABLETS [Suspect]
     Active Substance: MESALAMINE
     Indication: RECTAL HAEMORRHAGE
     Route: 048
     Dates: start: 201804, end: 201806
  2. MESALAMINE ORAL TABLETS [Suspect]
     Active Substance: MESALAMINE
     Indication: ABDOMINAL PAIN
     Route: 048
     Dates: start: 201804, end: 201806
  3. MESALAMINE ORAL TABLETS [Suspect]
     Active Substance: MESALAMINE
     Indication: DIARRHOEA
     Route: 048
     Dates: start: 201804, end: 201806
  4. MESALAMINE ORAL TABLETS [Suspect]
     Active Substance: MESALAMINE
     Indication: COLITIS ULCERATIVE
     Route: 048
     Dates: start: 201804, end: 201806

REACTIONS (4)
  - Colitis ulcerative [None]
  - Mouth ulceration [None]
  - Rectal haemorrhage [None]
  - Oral mucosal eruption [None]

NARRATIVE: CASE EVENT DATE: 20180404
